FAERS Safety Report 7651335-0 (Version None)
Quarter: 2011Q3

REPORT INFORMATION
  Report Type: 
  Country: None (occurrence: None)
  Receive Date: 20110802
  Receipt Date: 20110720
  Transmission Date: 20111222
  Serious: Yes (Hospitalization)
  Sender: FDA-Public Use
  Company Number: US-ASTRAZENECA-2008UW25022

PATIENT
  Age: 45 Year
  Sex: Male
  Weight: 81.2 kg

DRUGS (10)
  1. GEODON [Concomitant]
     Dates: start: 20040101
  2. SEROQUEL [Suspect]
     Indication: DEPRESSION
     Dosage: 100-300 MG
     Route: 048
     Dates: start: 20040612, end: 20070621
  3. ZOLOFT [Concomitant]
     Route: 048
     Dates: start: 20040816, end: 20040915
  4. SEROQUEL [Suspect]
     Indication: SCHIZOPHRENIA
     Dosage: 100-300 MG
     Route: 048
     Dates: start: 20040612, end: 20070621
  5. THIAMINE [Concomitant]
     Route: 048
     Dates: start: 20040816, end: 20040915
  6. SEROQUEL [Suspect]
     Indication: BIPOLAR DISORDER
     Dosage: 100-300 MG
     Route: 048
     Dates: start: 20040612, end: 20070621
  7. SEROQUEL [Suspect]
     Dosage: 100 MG QAM AND HS
     Route: 048
     Dates: start: 20040817, end: 20040916
  8. ZOLOFT [Concomitant]
     Dates: start: 20040101
  9. SEROQUEL [Suspect]
     Dosage: 100 MG QAM AND HS
     Route: 048
     Dates: start: 20040817, end: 20040916
  10. SEROQUEL [Suspect]
     Dosage: 100 MG QAM AND HS
     Route: 048
     Dates: start: 20040817, end: 20040916

REACTIONS (4)
  - HOSPITALISATION [None]
  - OBESITY [None]
  - HYPERTENSION [None]
  - DIABETES MELLITUS [None]
